FAERS Safety Report 4951732-8 (Version None)
Quarter: 2006Q1

REPORT INFORMATION
  Report Type: 
  Country: None (occurrence: None)
  Receive Date: 20060323
  Receipt Date: 20060317
  Transmission Date: 20060701
  Serious: Yes (Other)
  Sender: FDA-Public Use
  Company Number: CA-GLAXOSMITHKLINE-A0598662A

PATIENT
  Age: 70 Year
  Sex: Male

DRUGS (1)
  1. AVANDIA [Suspect]
     Indication: DRUG USE FOR UNKNOWN INDICATION
     Dosage: 4MG UNKNOWN
     Route: 065

REACTIONS (1)
  - VISUAL ACUITY REDUCED [None]
